FAERS Safety Report 5643295-9 (Version None)
Quarter: 2008Q1

REPORT INFORMATION
  Report Type: 
  Country: None (occurrence: None)
  Receive Date: 20080228
  Receipt Date: 20080225
  Transmission Date: 20080703
  Serious: Yes (Other)
  Sender: FDA-Public Use
  Company Number: BE-ASTRAZENECA-2008AC00335

PATIENT
  Age: 76 Year
  Sex: Female
  Weight: 60 kg

DRUGS (4)
  1. CRESTOR [Suspect]
     Dosage: 4 TIMES A WEEK
     Route: 048
  2. EZETROL [Concomitant]
     Dosage: +/- 2 YEARS
  3. FOSAMAX [Concomitant]
     Dosage: +/- 2 YEARS
  4. STEOVIT D3 [Concomitant]
     Dosage: +/- 2 YEARS

REACTIONS (1)
  - TENDON RUPTURE [None]
